FAERS Safety Report 4362324-6 (Version None)
Quarter: 2004Q2

REPORT INFORMATION
  Report Type: 
  Country: None (occurrence: None)
  Receive Date: 20040520
  Receipt Date: 20040520
  Transmission Date: 20050107
  Serious: Yes (Life-Threatening, Hospitalization)
  Sender: FDA-Public Use
  Company Number: None

PATIENT
  Sex: Male
  Weight: 100 kg

DRUGS (1)
  1. GATIFLOXACIN [Suspect]
     Indication: URINARY TRACT INFECTION
     Dosage: 200 MG PO QD
     Route: 048
     Dates: start: 20040321, end: 20040408

REACTIONS (2)
  - CLOSTRIDIUM COLITIS [None]
  - INTESTINAL PERFORATION [None]
